FAERS Safety Report 14156605 (Version 3)
Quarter: 2018Q1

REPORT INFORMATION
  Report Type: Spontaneous
  Country: NL (occurrence: NL)
  Receive Date: 20171103
  Receipt Date: 20180309
  Transmission Date: 20180508
  Serious: Yes (Life-Threatening, Other)
  Sender: FDA-Public Use
  Company Number: NL-AUROBINDO-AUR-APL-2017-42950

PATIENT
  Age: 52 Year
  Sex: Male

DRUGS (4)
  1. VERAPAMIL HCL MODIFIED-RELEASE TABLET [Suspect]
     Active Substance: VERAPAMIL HYDROCHLORIDE
     Indication: VENTRICULAR FIBRILLATION
     Dosage: 300 MILLIGRAM
  2. AMIODARONE [Suspect]
     Active Substance: AMIODARONE
     Indication: VENTRICULAR FIBRILLATION
     Dosage: 200 MILLIGRAM
     Route: 065
  3. ISOSORBIDE MONONITRATE TABLETS [Suspect]
     Active Substance: ISOSORBIDE MONONITRATE
     Indication: VENTRICULAR FIBRILLATION
     Dosage: 100 MG, UNK
     Route: 065
  4. METOPROLOL TABLET [Suspect]
     Active Substance: METOPROLOL
     Indication: VENTRICULAR FIBRILLATION
     Dosage: 50 MILLIGRAM
     Route: 048

REACTIONS (2)
  - Drug ineffective [Unknown]
  - Ventricular tachycardia [Recovered/Resolved]
